FAERS Safety Report 6617004-0 (Version None)
Quarter: 2010Q1

REPORT INFORMATION
  Report Type: 
  Country: None (occurrence: None)
  Receive Date: 20100302
  Receipt Date: 20100218
  Transmission Date: 20100710
  Serious: Yes (Other)
  Sender: FDA-Public Use
  Company Number: 2010-0594

PATIENT
  Sex: Female

DRUGS (1)
  1. DYSPORT [Suspect]
     Indication: DRUG USE FOR UNKNOWN INDICATION
     Dosage: (SINGLE CYCLE)

REACTIONS (6)
  - BALANCE DISORDER [None]
  - CHOKING [None]
  - DEPRESSION [None]
  - DYSPHAGIA [None]
  - PSYCHIATRIC SYMPTOM [None]
  - WEIGHT DECREASED [None]
